FAERS Safety Report 26154651 (Version 1)
Quarter: 2025Q4

REPORT INFORMATION
  Report Type: Spontaneous
  Country: US (occurrence: US)
  Receive Date: 20251215
  Receipt Date: 20251215
  Transmission Date: 20260119
  Serious: Yes (Hospitalization, Other)
  Sender: PIRAMAL
  Company Number: US-PCCINC-2025-PPL-000692

PATIENT

DRUGS (1)
  1. LEVOTHYROXINE [Suspect]
     Active Substance: LEVOTHYROXINE
     Indication: Hypothyroidism
     Dosage: UNK
     Route: 042

REACTIONS (2)
  - Cardiac failure [Recovered/Resolved]
  - Hypokinesia [Recovered/Resolved]
